FAERS Safety Report 25779109 (Version 1)
Quarter: 2025Q3

REPORT INFORMATION
  Report Type: Spontaneous
  Country: US (occurrence: None)
  Receive Date: 20250908
  Receipt Date: 20250908
  Transmission Date: 20251021
  Serious: Yes (Hospitalization)
  Sender: FDA-CTU
  Company Number: None

PATIENT
  Age: 90 Year
  Sex: Male

DRUGS (1)
  1. LENALIDOMIDE [Suspect]
     Active Substance: LENALIDOMIDE
     Dosage: 10 MG DAILY

REACTIONS (5)
  - Platelet count decreased [None]
  - Cholecystitis infective [None]
  - Bile duct stone [None]
  - Urinary tract infection [None]
  - Therapy interrupted [None]
